FAERS Safety Report 10100480 (Version 1)
Quarter: 2014Q2

REPORT INFORMATION
  Report Type: Spontaneous
  Country: JP (occurrence: JP)
  Receive Date: 20140423
  Receipt Date: 20140423
  Transmission Date: 20141212
  Serious: Yes (Other)
  Sender: FDA-Public Use
  Company Number: PHHY2014JP049190

PATIENT
  Sex: Male

DRUGS (2)
  1. TASIGNA [Suspect]
     Route: 048
  2. ADALAT [Concomitant]
     Route: 048

REACTIONS (3)
  - Hypertension [Unknown]
  - Hyperglycaemia [Unknown]
  - Oedema peripheral [Unknown]
